FAERS Safety Report 16489152 (Version 1)
Quarter: 2019Q2

REPORT INFORMATION
  Report Type: Spontaneous
  Country: US (occurrence: US)
  Receive Date: 20190628
  Receipt Date: 20190628
  Transmission Date: 20190711
  Serious: No
  Sender: FDA-Public Use
  Company Number: US-ACCORD-068403

PATIENT
  Age: 12 Year
  Sex: Male
  Weight: 25.85 kg

DRUGS (1)
  1. CLONAZEPAM ACCORD [Suspect]
     Active Substance: CLONAZEPAM
     Indication: SEIZURE
     Dosage: STRENGTH: 1 MG?1/2 TO 2 TABLETS AT BEDTIME
     Route: 048
     Dates: start: 20180314

REACTIONS (1)
  - Drug ineffective [Unknown]
